FAERS Safety Report 6319804-3 (Version None)
Quarter: 2009Q3

REPORT INFORMATION
  Report Type: 
  Country: None (occurrence: None)
  Receive Date: 20090822
  Receipt Date: 20080929
  Transmission Date: 20100115
  Serious: No
  Sender: FDA-Public Use
  Company Number: US-ABBOTT-08P-163-0478535-00

PATIENT
  Sex: Female
  Weight: 95.34 kg

DRUGS (7)
  1. NIASPAN [Suspect]
     Indication: BLOOD CHOLESTEROL INCREASED
     Route: 048
     Dates: start: 20080601, end: 20080601
  2. FORTAET [Concomitant]
     Indication: DIABETES MELLITUS
     Route: 048
     Dates: start: 20060101
  3. POTASSIUM CHLORIDE [Concomitant]
     Indication: DIURETIC THERAPY
     Route: 048
     Dates: start: 20020101
  4. OS-CAL [Concomitant]
     Indication: MINERAL SUPPLEMENTATION
     Route: 048
     Dates: start: 20020101
  5. DERMIDEX [Concomitant]
     Indication: DIURETIC THERAPY
     Route: 048
     Dates: start: 20020101
  6. PANTOPRAZOLE SODIUM [Concomitant]
     Indication: GASTRIC DISORDER
     Route: 048
  7. CLONAZEPAM [Concomitant]
     Indication: ANXIOLYTIC THERAPY
     Route: 048

REACTIONS (1)
  - FEELING HOT [None]
